FAERS Safety Report 17820096 (Version 1)
Quarter: 2020Q2

REPORT INFORMATION
  Report Type: Spontaneous
  Country: DE (occurrence: DE)
  Receive Date: 20200525
  Receipt Date: 20200525
  Transmission Date: 20200714
  Serious: Yes (Life-Threatening, Hospitalization, Other)
  Sender: FDA-Public Use
  Company Number: DE-AUROBINDO-AUR-APL-2020-025358

PATIENT
  Age: 38 Year
  Sex: Male
  Weight: 95 kg

DRUGS (2)
  1. CEFUROXIME. [Suspect]
     Active Substance: CEFUROXIME
     Indication: ANTIBIOTIC PROPHYLAXIS
     Dosage: 1.5 GRAM
     Route: 042
     Dates: start: 20190617, end: 20190617
  2. CEFUROXIME. [Suspect]
     Active Substance: CEFUROXIME
     Indication: URETEROSCOPY

REACTIONS (4)
  - Hypotension [Unknown]
  - Tachycardia [Unknown]
  - Ventricular fibrillation [Recovered/Resolved]
  - Anaphylactic shock [Recovered/Resolved]

NARRATIVE: CASE EVENT DATE: 20190617
